FAERS Safety Report 25192601 (Version 2)
Quarter: 2025Q2

REPORT INFORMATION
  Report Type: Spontaneous
  Country: SE (occurrence: SE)
  Receive Date: 20250414
  Receipt Date: 20250630
  Transmission Date: 20250717
  Serious: Yes (Other)
  Sender: DAIICHI
  Company Number: SE-DSJP-DS-2025-134325-SE

PATIENT
  Age: 67 Year
  Sex: Female
  Weight: 100 kg

DRUGS (2)
  1. ENHERTU [Suspect]
     Active Substance: FAM-TRASTUZUMAB DERUXTECAN-NXKI
     Indication: Hormone receptor positive HER2 negative breast cancer
     Dosage: 3.9 MG/KG, ONCE EVERY 3 WK
     Route: 065
     Dates: start: 20250114, end: 20250114
  2. ENHERTU [Suspect]
     Active Substance: FAM-TRASTUZUMAB DERUXTECAN-NXKI
     Indication: Breast cancer metastatic

REACTIONS (6)
  - Pneumocystis jirovecii infection [Recovered/Resolved]
  - Interstitial lung disease [Recovered/Resolved]
  - Nausea [Unknown]
  - Abdominal pain [Unknown]
  - Disease progression [Unknown]
  - Incorrect dose administered [Recovered/Resolved]

NARRATIVE: CASE EVENT DATE: 20250101
